FAERS Safety Report 4747542-7 (Version None)
Quarter: 2005Q3

REPORT INFORMATION
  Report Type: 
  Country: None (occurrence: None)
  Receive Date: 20050818
  Receipt Date: 20040521
  Transmission Date: 20060218
  Serious: Yes (Hospitalization, Other)
  Sender: FDA-Public Use
  Company Number: US-BRISTOL-MYERS SQUIBB COMPANY-12593802

PATIENT
  Age: 44 Year
  Sex: Male

DRUGS (4)
  1. TEQUIN [Suspect]
     Indication: URINARY TRACT INFECTION
     Route: 048
     Dates: start: 20040423
  2. ATENOLOL [Concomitant]
  3. NEXIUM [Concomitant]
  4. QUESTRAN [Concomitant]

REACTIONS (1)
  - CONVULSION [None]
